FAERS Safety Report 6463466-1 (Version None)
Quarter: 2009Q4

REPORT INFORMATION
  Report Type: 
  Country: None (occurrence: None)
  Receive Date: 20091201
  Receipt Date: 20091016
  Transmission Date: 20100525
  Serious: Yes (Other)
  Sender: FDA-Public Use
  Company Number: US-AMGEN-QUU369583

PATIENT
  Sex: Male

DRUGS (2)
  1. ENBREL [Suspect]
     Indication: PSORIASIS
     Dates: start: 20070601, end: 20090801
  2. BETAMETHASONE [Concomitant]

REACTIONS (2)
  - ALCOHOL ABUSE [None]
  - CONVULSION [None]
